FAERS Safety Report 16697931 (Version 1)
Quarter: 2019Q3

REPORT INFORMATION
  Report Type: Report from Study
  Country: NL (occurrence: NL)
  Receive Date: 20190813
  Receipt Date: 20190813
  Transmission Date: 20191004
  Serious: Yes (Other)
  Sender: FDA-Public Use
  Company Number: NL-PFIZER INC-2019344765

PATIENT

DRUGS (2)
  1. PLACEBO [Suspect]
     Active Substance: UNSPECIFIED INGREDIENT
     Indication: RHEUMATOID ARTHRITIS
     Dosage: DAYS 1 AND 15 (METHYLPREDNISOLONE IM RECEIVED IV PLACEBO INFUSIONS)
     Route: 042
  2. METHYLPREDNISOLONE ACETATE. [Suspect]
     Active Substance: METHYLPREDNISOLONE ACETATE
     Indication: RHEUMATOID ARTHRITIS
     Dosage: 120 MG, DAYS 1 AND 15 (METHYLPREDNISOLONE IM RECEIVED IV PLACEBO INFUSIONS)
     Route: 030

REACTIONS (1)
  - Viral upper respiratory tract infection [Unknown]
